FAERS Safety Report 4734167-2 (Version None)
Quarter: 2005Q3

REPORT INFORMATION
  Report Type: 
  Country: None (occurrence: None)
  Receive Date: 20050803
  Receipt Date: 20050803
  Transmission Date: 20060218
  Serious: No
  Sender: FDA-Public Use
  Company Number: None

PATIENT
  Age: 31 Year
  Sex: Male
  Weight: 73 kg

DRUGS (6)
  1. BLEOMYCIN [Suspect]
     Indication: TESTIS CANCER
     Dosage: 2 UNIT IV TEST
     Route: 042
     Dates: start: 20050706
  2. BLEOMYCIN [Suspect]
     Indication: TESTIS CANCER
     Dosage: 2 UNIT IV TEST
     Route: 042
     Dates: start: 20050712
  3. BLEOMYCIN [Suspect]
     Indication: TESTIS CANCER
     Dosage: 2 UNIT IV TEST
     Route: 042
     Dates: start: 20050719
  4. BLEOMYCIN [Suspect]
     Indication: TESTIS CANCER
     Dosage: 2 UNIT IV TEST
     Route: 042
     Dates: start: 20050727
  5. CISPLATIN [Concomitant]
  6. ETOPOSIDE [Concomitant]

REACTIONS (6)
  - CHEST PAIN [None]
  - HEART RATE INCREASED [None]
  - INFUSION RELATED REACTION [None]
  - PARAESTHESIA [None]
  - THROAT TIGHTNESS [None]
  - URTICARIA [None]
